FAERS Safety Report 20002999 (Version 2)
Quarter: 2021Q4

REPORT INFORMATION
  Report Type: Spontaneous
  Country: CN (occurrence: None)
  Receive Date: 20211027
  Receipt Date: 20211103
  Transmission Date: 20220304
  Serious: Yes (Other)
  Sender: FDA-Public Use
  Company Number: CN-ROCHE-2941772

PATIENT
  Age: 54 Year
  Sex: Female
  Weight: 58 kg

DRUGS (14)
  1. HERCEPTIN [Suspect]
     Active Substance: TRASTUZUMAB
     Indication: Breast cancer
     Route: 041
     Dates: end: 202001
  2. HERCEPTIN [Suspect]
     Active Substance: TRASTUZUMAB
     Route: 041
     Dates: start: 20200331
  3. HERCEPTIN [Suspect]
     Active Substance: TRASTUZUMAB
     Dosage: 8 MG/KG FOR THE FIRST TIME, THEN 6 MG/KG; 21 DAYS AS A CYCLE
     Route: 041
     Dates: start: 20210714
  4. PERJETA [Concomitant]
     Active Substance: PERTUZUMAB
     Indication: Breast cancer
     Dosage: 840MG FOR THE FIRST TIME, THEN 420MG; 21 DAYS AS A CYCLE
     Dates: start: 20210714
  5. EPIRUBICIN [Concomitant]
     Active Substance: EPIRUBICIN
     Indication: Breast cancer
  6. CYCLOPHOSPHAMIDE [Concomitant]
     Active Substance: CYCLOPHOSPHAMIDE
     Indication: Breast cancer
  7. FLUOROURACIL [Concomitant]
     Active Substance: FLUOROURACIL
     Indication: Breast cancer
  8. TAMOXIFEN [Concomitant]
     Active Substance: TAMOXIFEN
     Indication: Breast cancer
     Route: 048
  9. PACLITAXEL [Concomitant]
     Active Substance: PACLITAXEL
     Indication: Breast cancer
  10. GEMCITABINE [Concomitant]
     Active Substance: GEMCITABINE
     Indication: Breast cancer
     Dosage: DAY1,8
     Dates: start: 20210331
  11. PYROTINIB [Concomitant]
     Active Substance: PYROTINIB
     Indication: Breast cancer
     Route: 048
     Dates: start: 20210519
  12. CAPECITABINE [Concomitant]
     Active Substance: CAPECITABINE
     Indication: Breast cancer
     Route: 048
     Dates: start: 20210519
  13. METFORMIN [Concomitant]
     Active Substance: METFORMIN HYDROCHLORIDE
     Indication: Type 2 diabetes mellitus
  14. AMLODIPINE BESYLATE [Concomitant]
     Active Substance: AMLODIPINE BESYLATE
     Indication: Hypertension
     Route: 048

REACTIONS (4)
  - Myelosuppression [Unknown]
  - Pyrexia [Unknown]
  - Hypoaesthesia [Unknown]
  - Agranulocytosis [Unknown]
